FAERS Safety Report 5788538-6 (Version None)
Quarter: 2008Q2

REPORT INFORMATION
  Report Type: 
  Country: None (occurrence: None)
  Receive Date: 20080626
  Receipt Date: 20080616
  Transmission Date: 20081010
  Serious: Yes (Hospitalization)
  Sender: FDA-Public Use
  Company Number: US-JNJFOC-20080604215

PATIENT
  Age: 47 Year
  Sex: Male
  Weight: 120.2 kg

DRUGS (8)
  1. GRIFULVIN V [Suspect]
     Indication: FUNGAL INFECTION
     Route: 048
  2. METFORMIN HCL [Concomitant]
  3. PROZAC [Concomitant]
  4. DEPAKOTE [Concomitant]
  5. TRAZODONE HCL [Concomitant]
  6. LOVASTATIN [Concomitant]
  7. LISINOPRIL [Concomitant]
  8. HYDROCHLOROTHIAZIDE [Concomitant]

REACTIONS (3)
  - DIABETES MELLITUS [None]
  - HYPERTENSION [None]
  - RENAL FAILURE [None]
